FAERS Safety Report 21036390 (Version 1)
Quarter: 2022Q3

REPORT INFORMATION
  Report Type: Report from Study
  Country: FR (occurrence: FR)
  Receive Date: 20220702
  Receipt Date: 20220702
  Transmission Date: 20221026
  Serious: Yes (Other)
  Sender: FDA-Public Use
  Company Number: FR-BAXTER-2022BAX010076

PATIENT
  Sex: Female

DRUGS (13)
  1. DOXORUBICIN [Suspect]
     Active Substance: DOXORUBICIN
     Indication: Non-Hodgkin^s lymphoma
     Dosage: UNK, CYCLICAL (UNK, CYCLICAL)
     Route: 065
  2. PREDNISONE [Suspect]
     Active Substance: PREDNISONE
     Indication: Non-Hodgkin^s lymphoma
     Dosage: UNK, CYCLICAL (4 CYCLES OF R-ACVBP)
     Route: 065
  3. CYCLOPHOSPHAMIDE [Suspect]
     Active Substance: CYCLOPHOSPHAMIDE
     Indication: Non-Hodgkin^s lymphoma
     Dosage: UNK, CYCLICAL (4 CYCLES OF R-ACVBP)
     Route: 065
  4. RITUXIMAB [Suspect]
     Active Substance: RITUXIMAB
     Indication: Non-Hodgkin^s lymphoma
     Dosage: UNK, CYCLICAL (4 CYCLES OF R-ACVBP)
     Route: 065
  5. BLEOMYCIN SULFATE [Suspect]
     Active Substance: BLEOMYCIN SULFATE
     Indication: Non-Hodgkin^s lymphoma
     Dosage: UNK, CYCLICAL (1 CYCLE OF ABVD)
     Route: 065
  6. BLEOMYCIN SULFATE [Suspect]
     Active Substance: BLEOMYCIN SULFATE
     Dosage: UNK, CYCLICAL (4 CYCLES OF R-ACVBP)
     Route: 065
  7. VINBLASTINE [Suspect]
     Active Substance: VINBLASTINE
     Indication: Non-Hodgkin^s lymphoma
     Dosage: UNK, CYCLICAL (1 CYCLE OF ABVD)
     Route: 065
  8. DACARBAZINE [Suspect]
     Active Substance: DACARBAZINE
     Indication: Non-Hodgkin^s lymphoma
     Dosage: UNK, CYCLICAL (1 CYCLE OF ABVD)
     Route: 065
  9. VINDESINE [Suspect]
     Active Substance: VINDESINE
     Indication: Non-Hodgkin^s lymphoma
     Dosage: UNK, CYCLICAL (4 CYCLES OF R-ACVBP)
     Route: 065
  10. VINCRISTINE [Suspect]
     Active Substance: VINCRISTINE
     Indication: Hodgkin^s disease
     Dosage: UNK, CYCLICAL
     Route: 065
  11. ETOPOSIDE [Suspect]
     Active Substance: ETOPOSIDE
     Indication: Hodgkin^s disease
     Dosage: 2 CYCLICAL
     Route: 065
  12. PROCARBAZINE [Suspect]
     Active Substance: PROCARBAZINE
     Indication: Hodgkin^s disease
     Dosage: UNK, CYCLICAL
     Route: 065
  13. MECHLORETHAMINE [Suspect]
     Active Substance: MECHLORETHAMINE
     Indication: Hodgkin^s disease
     Dosage: 2 CYCLICAL
     Route: 065

REACTIONS (2)
  - Abortion spontaneous [Unknown]
  - Drug exposure before pregnancy [Unknown]
